FAERS Safety Report 9729151 (Version 1)
Quarter: 2013Q4

REPORT INFORMATION
  Report Type: Spontaneous
  Country: CA (occurrence: CA)
  Receive Date: 20131204
  Receipt Date: 20131204
  Transmission Date: 20140711
  Serious: Yes (Other)
  Sender: FDA-Public Use
  Company Number: CA-JNJFOC-20131117611

PATIENT
  Sex: 0

DRUGS (1)
  1. REMICADE [Suspect]
     Indication: CROHN^S DISEASE
     Dosage: AT WEEKS 0, 2 AND 6, AND 8 WEEKS MAINTENANCE
     Route: 042

REACTIONS (4)
  - Intestinal stenosis [Unknown]
  - Adverse event [Unknown]
  - Therapeutic response decreased [Unknown]
  - Infusion related reaction [Unknown]
